FAERS Safety Report 24315004 (Version 1)
Quarter: 2024Q3

REPORT INFORMATION
  Report Type: Spontaneous
  Country: CN (occurrence: CN)
  Receive Date: 20240913
  Receipt Date: 20240913
  Transmission Date: 20241017
  Serious: Yes (Other)
  Sender: BAUSCH AND LOMB
  Company Number: CN-MLMSERVICE-20240902-PI176961-00117-2

PATIENT
  Sex: Female

DRUGS (1)
  1. DEXAMETHASONE [Suspect]
     Active Substance: DEXAMETHASONE
     Indication: Product used for unknown indication
     Dosage: FOUR DOSES OF ANTENATAL DEXAMETHASONE, 6 MG, Q12H, IM
     Route: 064

REACTIONS (3)
  - Leukaemoid reaction [Recovered/Resolved]
  - Intraventricular haemorrhage neonatal [Recovering/Resolving]
  - Maternal exposure during pregnancy [Unknown]
